FAERS Safety Report 17067173 (Version 1)
Quarter: 2019Q4

REPORT INFORMATION
  Report Type: Spontaneous
  Country: DE (occurrence: DE)
  Receive Date: 20191122
  Receipt Date: 20191122
  Transmission Date: 20200122
  Serious: Yes (Hospitalization)
  Sender: FDA-Public Use
  Company Number: DE-MYLANLABS-2019M1112728

PATIENT
  Age: 74 Year
  Sex: Male
  Weight: 148 kg

DRUGS (8)
  1. CARMEN                             /01366402/ [Concomitant]
     Active Substance: LERCANIDIPINE
     Dosage: 20 MILLIGRAM (0-0-0.5-0)
     Route: 048
  2. BICANORM [Concomitant]
     Active Substance: SODIUM BICARBONATE
     Dosage: 1 GRAM, TID (1-1-1-0)
     Route: 048
  3. PANTOPRAZOL                        /01263201/ [Concomitant]
     Active Substance: PANTOPRAZOLE
     Dosage: 20 MILLIGRAM, QD (1-0-0-0)
     Route: 048
  4. TORASEMIDE [Suspect]
     Active Substance: TORSEMIDE
     Indication: PRODUCT USED FOR UNKNOWN INDICATION
     Dosage: 10 MILLIGRAM, QD (1-0-0-0)
     Route: 048
  5. ALLOPURINOL. [Concomitant]
     Active Substance: ALLOPURINOL
     Dosage: 300 MILLIGRAM (0-0-0.5-0)
     Route: 048
  6. SIMVASTATIN. [Concomitant]
     Active Substance: SIMVASTATIN
     Dosage: 20 MILLIGRAM, QD
     Route: 048
  7. IRBESARTAN. [Suspect]
     Active Substance: IRBESARTAN
     Indication: PRODUCT USED FOR UNKNOWN INDICATION
     Dosage: 300 MILLIGRAM (0.5-0-0-0)
     Route: 048
  8. TILIDINE [Concomitant]
     Active Substance: TILIDINE
     Dosage: 504 MILLIGRAM, BID (1-0-1-0)
     Route: 048

REACTIONS (2)
  - Electrolyte imbalance [Unknown]
  - Cough [Unknown]
